FAERS Safety Report 9269835 (Version 2)
Quarter: 2013Q2

REPORT INFORMATION
  Report Type: Spontaneous
  Country: US (occurrence: US)
  Receive Date: 20130503
  Receipt Date: 20130605
  Transmission Date: 20140414
  Serious: Yes (Other)
  Sender: FDA-Public Use
  Company Number: US-FRI-1000044837

PATIENT
  Age: 40 Year
  Sex: Female

DRUGS (3)
  1. LINZESS [Suspect]
     Indication: CONSTIPATION
     Dosage: 145 MCG
     Route: 048
     Dates: start: 20130222, end: 20130323
  2. LINZESS [Suspect]
     Indication: CONSTIPATION
     Dosage: 145 MCG
     Route: 048
     Dates: start: 20130331
  3. FLONASE [Concomitant]
     Indication: HYPERSENSITIVITY
     Dosage: DAILY
     Route: 045

REACTIONS (5)
  - Vitamin B6 increased [Not Recovered/Not Resolved]
  - Visual impairment [Recovering/Resolving]
  - Gait disturbance [Recovering/Resolving]
  - Pain in jaw [Recovering/Resolving]
  - Neck pain [Recovering/Resolving]
